FAERS Safety Report 7542813-3 (Version None)
Quarter: 2011Q2

REPORT INFORMATION
  Report Type: 
  Country: None (occurrence: None)
  Receive Date: 20110613
  Receipt Date: 20110531
  Transmission Date: 20111010
  Serious: Yes (Hospitalization)
  Sender: FDA-Public Use
  Company Number: US-CELGENEUS-163-21880-11060121

PATIENT
  Sex: Male

DRUGS (3)
  1. ASPIRIN [Concomitant]
     Route: 065
  2. REVLIMID [Suspect]
     Dosage: 5 MILLIGRAM
     Route: 048
     Dates: start: 20110601
  3. REVLIMID [Suspect]
     Indication: MYELODYSPLASTIC SYNDROME
     Dosage: 5 MILLIGRAM
     Route: 048
     Dates: start: 20091201

REACTIONS (4)
  - CARDIAC FAILURE CONGESTIVE [None]
  - RENAL TUBULAR NECROSIS [None]
  - BLOOD BILIRUBIN INCREASED [None]
  - ATRIAL FIBRILLATION [None]
